FAERS Safety Report 12218450 (Version 2)
Quarter: 2016Q2

REPORT INFORMATION
  Report Type: Report from Study
  Country: BR (occurrence: BR)
  Receive Date: 20160329
  Receipt Date: 20160407
  Transmission Date: 20160815
  Serious: Yes (Other)
  Sender: FDA-Public Use
  Company Number: PHHY2016BR039877

PATIENT
  Sex: Male
  Weight: 39 kg

DRUGS (3)
  1. TRILEPTAL [Suspect]
     Active Substance: OXCARBAZEPINE
     Indication: SEIZURE
     Dosage: 6 ML IN THE AFTERNOON, BID (HALF AMPOULE IN MORNING AND WHOLE ONE IN AFTERNOON)
     Route: 048
     Dates: start: 2005
  2. GARDENAL//PHENOBARBITAL [Suspect]
     Active Substance: PHENOBARBITAL
     Indication: AGGRESSION
     Dosage: 0.5 DF, QD
     Route: 048
  3. TRILEPTAL [Suspect]
     Active Substance: OXCARBAZEPINE
     Dosage: 60 MG OR 300 MG
     Route: 065

REACTIONS (10)
  - Somnambulism [Not Recovered/Not Resolved]
  - Mumps [Recovering/Resolving]
  - Fall [Unknown]
  - Pyrexia [Recovered/Resolved]
  - Somnolence [Unknown]
  - Drug ineffective [Unknown]
  - Seizure [Recovering/Resolving]
  - Pharyngitis [Unknown]
  - Oropharyngeal pain [Recovered/Resolved]
  - Feeling abnormal [Unknown]
